FAERS Safety Report 14018342 (Version 1)
Quarter: 2017Q3

REPORT INFORMATION
  Report Type: Spontaneous
  Country: US (occurrence: US)
  Receive Date: 20170927
  Receipt Date: 20170927
  Transmission Date: 20171128
  Serious: Yes (Disabling)
  Sender: FDA-Public Use
  Company Number: None

PATIENT
  Age: 57 Year
  Sex: Female
  Weight: 54 kg

DRUGS (4)
  1. CLONAZEPAM 0.5 MG [Suspect]
     Active Substance: CLONAZEPAM
     Indication: RESTLESS LEGS SYNDROME
     Dosage: ?          QUANTITY:2 TABLET(S);?
     Route: 048
  2. CLONAZEPAM 0.5 MG [Suspect]
     Active Substance: CLONAZEPAM
     Indication: INSOMNIA
     Dosage: ?          QUANTITY:2 TABLET(S);?
     Route: 048
  3. PRO-BIOTICS [Concomitant]
  4. MULTI-VITAMIN + MINERAL [Concomitant]

REACTIONS (38)
  - Feeling abnormal [None]
  - Cognitive disorder [None]
  - Irritability [None]
  - Hyperhidrosis [None]
  - Restless legs syndrome [None]
  - Akathisia [None]
  - Neck pain [None]
  - Memory impairment [None]
  - Abnormal dreams [None]
  - Restlessness [None]
  - Nervousness [None]
  - Dizziness [None]
  - Amnesia [None]
  - Hypervigilance [None]
  - Temperature intolerance [None]
  - Tinnitus [None]
  - Condition aggravated [None]
  - Myoclonus [None]
  - Blood pressure fluctuation [None]
  - Back pain [None]
  - Tachycardia [None]
  - Withdrawal syndrome [None]
  - Headache [None]
  - Aphasia [None]
  - Fatigue [None]
  - Muscle spasms [None]
  - Intrusive thoughts [None]
  - Nausea [None]
  - Nocturia [None]
  - Head discomfort [None]
  - Paraesthesia [None]
  - Insomnia [None]
  - Tremor [None]
  - Discomfort [None]
  - Disturbance in attention [None]
  - Somnolence [None]
  - Agitation [None]
  - Hyperacusis [None]

NARRATIVE: CASE EVENT DATE: 20170115
